FAERS Safety Report 5381615-3 (Version None)
Quarter: 2007Q3

REPORT INFORMATION
  Report Type: 
  Country: None (occurrence: None)
  Receive Date: 20070709
  Receipt Date: 20070627
  Transmission Date: 20080115
  Serious: Yes (Other)
  Sender: FDA-Public Use
  Company Number: PHBS2007US05597

PATIENT
  Age: 22 Year
  Sex: Female

DRUGS (3)
  1. CLOZAPINE [Suspect]
     Indication: SCHIZOPHRENIA, PARANOID TYPE
     Dosage: 500 MG/D
     Route: 065
  2. ZIPRASIDONE [Concomitant]
     Dosage: 180 MG/D
     Route: 065
  3. ALLOPURINOL [Suspect]
     Dosage: 300 MG, QHS
     Route: 065

REACTIONS (7)
  - BLOOD TRIGLYCERIDES INCREASED [None]
  - GOUT [None]
  - HALLUCINATION, AUDITORY [None]
  - MONARTHRITIS [None]
  - PARANOIA [None]
  - PSYCHOTIC DISORDER [None]
  - WEIGHT INCREASED [None]
